FAERS Safety Report 4908834-1 (Version None)
Quarter: 2006Q1

REPORT INFORMATION
  Report Type: 
  Country: None (occurrence: None)
  Receive Date: 20060210
  Receipt Date: 20060131
  Transmission Date: 20060701
  Serious: Yes (Hospitalization)
  Sender: FDA-Public Use
  Company Number: CA-JNJFOC-20060200831

PATIENT
  Age: 46 Year
  Sex: Female

DRUGS (6)
  1. RISPERDAL [Suspect]
     Indication: SCHIZOPHRENIA
  2. PAROXETINE HCL [Suspect]
     Indication: DRUG USE FOR UNKNOWN INDICATION
  3. TEMAZEPAM [Concomitant]
  4. DOXEPIN [Concomitant]
  5. IRON [Concomitant]
  6. LAXATIVE [Concomitant]

REACTIONS (2)
  - DRUG INTERACTION [None]
  - HAEMOPTYSIS [None]
